FAERS Safety Report 9819211 (Version 1)
Quarter: 2013Q4

REPORT INFORMATION
  Report Type: Spontaneous
  Country: US (occurrence: None)
  Receive Date: 20131223
  Receipt Date: 20131223
  Transmission Date: 20140711
  Serious: No
  Sender: FDA-Public Use
  Company Number: 217492

PATIENT
  Age: 57 Year
  Sex: Female

DRUGS (2)
  1. PICATO GEL [Suspect]
     Indication: ACTINIC KERATOSIS
     Dosage: X3 DAYS WITH 1 DAY
     Dates: start: 20120502, end: 20120505
  2. RETIN A (TRENTINOIN) [Concomitant]

REACTIONS (3)
  - Application site pain [None]
  - Application site erythema [None]
  - Application site reaction [None]
